FAERS Safety Report 21249930 (Version 1)
Quarter: 2022Q3

REPORT INFORMATION
  Report Type: Spontaneous
  Country: US (occurrence: None)
  Receive Date: 20220824
  Receipt Date: 20220824
  Transmission Date: 20221026
  Serious: Yes (Other)
  Sender: FDA-Public Use
  Company Number: None

PATIENT
  Age: 71 Year
  Sex: Female
  Weight: 75.8 kg

DRUGS (1)
  1. BEBTELOVIMAB [Suspect]
     Active Substance: BEBTELOVIMAB
     Indication: COVID-19
     Dates: start: 20220613, end: 20220613

REACTIONS (3)
  - Flushing [None]
  - Blood pressure increased [None]
  - Headache [None]

NARRATIVE: CASE EVENT DATE: 20220613
